FAERS Safety Report 5793752-X (Version None)
Quarter: 2008Q2

REPORT INFORMATION
  Report Type: 
  Country: None (occurrence: None)
  Receive Date: 20080627
  Receipt Date: 20080617
  Transmission Date: 20081010
  Serious: Yes (Other)
  Sender: FDA-Public Use
  Company Number: GB-PFIZER INC-2008052004

PATIENT
  Age: 51 Year
  Sex: Female

DRUGS (2)
  1. CHANTIX [Suspect]
     Route: 048
     Dates: start: 20080421, end: 20080608
  2. METHOTREXATE [Interacting]
     Route: 048

REACTIONS (6)
  - BLISTER [None]
  - DRUG INTERACTION [None]
  - MOUTH ULCERATION [None]
  - SKIN ULCER [None]
  - TONGUE ULCERATION [None]
  - VAGINAL HAEMORRHAGE [None]
